FAERS Safety Report 9727439 (Version 1)
Quarter: 2013Q4

REPORT INFORMATION
  Report Type: Spontaneous
  Country: BG (occurrence: None)
  Receive Date: 20131129
  Receipt Date: 20131129
  Transmission Date: 20140711
  Serious: Yes (Hospitalization)
  Sender: FDA-Public Use
  Company Number: SYM-2013-13177

PATIENT
  Sex: 0

DRUGS (3)
  1. BRIMONIDINE TARTRATE [Suspect]
     Indication: DEVELOPMENTAL GLAUCOMA
     Route: 047
  2. BRINZOLAMIDE [Suspect]
     Indication: DEVELOPMENTAL GLAUCOMA
     Route: 047
  3. TIMOLOL [Suspect]
     Indication: DEVELOPMENTAL GLAUCOMA
     Route: 061

REACTIONS (8)
  - Altered state of consciousness [None]
  - Hypotension [None]
  - Hypothermia [None]
  - Bradycardia [None]
  - Apnoea [None]
  - Hypertension [None]
  - Bronchial obstruction [None]
  - Toxicity to various agents [None]
